FAERS Safety Report 16067496 (Version 2)
Quarter: 2019Q2

REPORT INFORMATION
  Report Type: Spontaneous
  Country: CA (occurrence: CA)
  Receive Date: 20190313
  Receipt Date: 20190409
  Transmission Date: 20190711
  Serious: Yes (Other)
  Sender: FDA-Public Use
  Company Number: CA-PFIZER INC-2019102767

PATIENT
  Sex: Male

DRUGS (1)
  1. ADVIL [Suspect]
     Active Substance: IBUPROFEN
     Dosage: UNK
     Dates: start: 20190302, end: 20190305

REACTIONS (3)
  - Foreign body in respiratory tract [Unknown]
  - Oropharyngeal pain [Unknown]
  - Product use complaint [Unknown]

NARRATIVE: CASE EVENT DATE: 201903
